FAERS Safety Report 9874832 (Version 1)
Quarter: 2014Q1

REPORT INFORMATION
  Report Type: Other
  Country: US (occurrence: US)
  Receive Date: 20140206
  Receipt Date: 20140206
  Transmission Date: 20141002
  Serious: No
  Sender: FDA-Public Use
  Company Number: US-ACORDA-ACO_35774_2013

PATIENT
  Age: 51 Year
  Sex: Male
  Weight: 88.44 kg

DRUGS (7)
  1. AMPYRA [Suspect]
     Indication: GAIT DISTURBANCE
     Dosage: 10 MG, Q 12 HRS
     Route: 048
     Dates: start: 201205
  2. ALL OTHER THERAPEUTIC PRODUCTS [Suspect]
     Indication: DEPRESSION
     Dosage: UNK
     Dates: end: 201302
  3. PROZAC [Suspect]
     Indication: DEPRESSION
     Dosage: 20 MG, QD
     Route: 048
     Dates: start: 201302, end: 2013
  4. PROZAC [Suspect]
     Dosage: 40 MG, QD
     Route: 048
     Dates: start: 2013, end: 201303
  5. PROZAC [Suspect]
     Dosage: 60 MG, QD
     Route: 048
     Dates: start: 201303
  6. COPAXONE [Concomitant]
     Indication: PRODUCT USED FOR UNKNOWN INDICATION
     Dosage: UNK
  7. CHANTIX [Concomitant]
     Indication: SMOKING CESSATION THERAPY
     Dosage: UNK
     Dates: start: 20130302

REACTIONS (2)
  - Depression [Recovering/Resolving]
  - Malaise [Recovered/Resolved]
